FAERS Safety Report 6063322-7 (Version None)
Quarter: 2009Q1

REPORT INFORMATION
  Report Type: 
  Country: None (occurrence: None)
  Receive Date: 20090203
  Receipt Date: 20090121
  Transmission Date: 20090719
  Serious: Yes (Other)
  Sender: FDA-Public Use
  Company Number: US-PFIZER INC-2008152563

PATIENT
  Sex: Female
  Weight: 67.574 kg

DRUGS (6)
  1. LYRICA [Suspect]
     Indication: NEUROPATHY PERIPHERAL
     Dosage: UNK
     Dates: start: 20081101
  2. LYRICA [Suspect]
     Indication: BACK PAIN
  3. WARFARIN [Suspect]
  4. TOPROL-XL [Concomitant]
     Dosage: UNK
  5. LOVASTATIN [Concomitant]
     Dosage: UNK
  6. ZOLOFT [Concomitant]
     Indication: NERVOUS SYSTEM DISORDER
     Dosage: UNK

REACTIONS (7)
  - ATRIAL FIBRILLATION [None]
  - BALANCE DISORDER [None]
  - FALL [None]
  - INTENTIONAL DRUG MISUSE [None]
  - INTERNATIONAL NORMALISED RATIO DECREASED [None]
  - MALAISE [None]
  - WEIGHT INCREASED [None]
